FAERS Safety Report 9168837 (Version 1)
Quarter: 2013Q1

REPORT INFORMATION
  Report Type: Spontaneous
  Country: US (occurrence: None)
  Receive Date: 20130314
  Receipt Date: 20130314
  Transmission Date: 20140127
  Serious: Yes (Other)
  Sender: FDA-Public Use
  Company Number: None

PATIENT
  Age: 27 Year
  Sex: Male

DRUGS (1)
  1. ZELBORAF 240 MG, GENENGTECH [Suspect]
     Indication: MALIGNANT MELANOMA
     Route: 048
     Dates: start: 20121213, end: 20130113

REACTIONS (8)
  - Erythema [None]
  - Rash [None]
  - Dry skin [None]
  - Furuncle [None]
  - Nausea [None]
  - Vomiting [None]
  - Diarrhoea [None]
  - Pyrexia [None]
